FAERS Safety Report 20361775 (Version 1)
Quarter: 2022Q1

REPORT INFORMATION
  Report Type: Report from Study
  Country: DE (occurrence: DE)
  Receive Date: 20220121
  Receipt Date: 20220121
  Transmission Date: 20220423
  Serious: Yes (Other)
  Sender: FDA-Public Use
  Company Number: DE-PFIZER INC-202200051279

PATIENT
  Age: 8 Day

DRUGS (6)
  1. VORICONAZOLE [Suspect]
     Active Substance: VORICONAZOLE
     Indication: Trichosporon infection
     Dosage: 6 MG/KG, DAILY (Q12, LOADING DOSE, D1)
  2. VORICONAZOLE [Suspect]
     Active Substance: VORICONAZOLE
     Dosage: 4 MG/KG, DAILY (Q12, FROM DAY 2)
  3. VORICONAZOLE [Suspect]
     Active Substance: VORICONAZOLE
     Dosage: 9 MG/KG, DAILY (Q12, DOSE MODIFICATION)
  4. AMPHOTERICIN B [Concomitant]
     Active Substance: AMPHOTERICIN B
     Indication: Trichosporon infection
     Dosage: UNK
  5. POSACONAZOLE [Concomitant]
     Active Substance: POSACONAZOLE
     Indication: Trichosporon infection
     Dosage: 5 MG/KG, 2X/DAY
  6. POSACONAZOLE [Concomitant]
     Active Substance: POSACONAZOLE
     Dosage: 7 MG/KG, 2X/DAY

REACTIONS (1)
  - Hepatotoxicity [Recovered/Resolved]
